FAERS Safety Report 10335349 (Version 2)
Quarter: 2014Q3

REPORT INFORMATION
  Report Type: Spontaneous
  Country: US (occurrence: US)
  Receive Date: 20140723
  Receipt Date: 20140723
  Transmission Date: 20150326
  Serious: No
  Sender: FDA-Public Use
  Company Number: US-UNITED THERAPEUTICS-UTC-043091

PATIENT
  Sex: Female
  Weight: 65.31 kg

DRUGS (5)
  1. LETAIRIS [Suspect]
     Active Substance: AMBRISENTAN
     Route: 065
     Dates: start: 20100609
  2. WARFARIN [Concomitant]
     Active Substance: WARFARIN
  3. REMODULIN [Suspect]
     Active Substance: TREPROSTINIL
     Dosage: 0.0405 UG/KG/MIN
     Route: 058
     Dates: start: 20131209
  4. REMODULIN [Suspect]
     Active Substance: TREPROSTINIL
     Dosage: 0.0405 UG/KG/MIN
     Route: 058
     Dates: start: 20131209
  5. REVATIO [Concomitant]
     Active Substance: SILDENAFIL CITRATE

REACTIONS (13)
  - Device dislocation [Not Recovered/Not Resolved]
  - Pain in extremity [Not Recovered/Not Resolved]
  - Infusion site bruising [Unknown]
  - Infusion site pain [Unknown]
  - Bone pain [Unknown]
  - Epistaxis [Unknown]
  - Back pain [Not Recovered/Not Resolved]
  - Infusion site erythema [Unknown]
  - Infusion site induration [Unknown]
  - Neuralgia [Not Recovered/Not Resolved]
  - Infusion site swelling [Unknown]
  - Pain [Unknown]
  - Headache [Not Recovered/Not Resolved]
